FAERS Safety Report 7357149-3 (Version None)
Quarter: 2011Q1

REPORT INFORMATION
  Report Type: 
  Country: None (occurrence: None)
  Receive Date: 20110308
  Receipt Date: 20110223
  Transmission Date: 20110831
  Serious: Yes (Hospitalization)
  Sender: FDA-Public Use
  Company Number: 028010

PATIENT
  Sex: Male
  Weight: 79 kg

DRUGS (3)
  1. LACOSAMIDE [Suspect]
     Indication: PARTIAL SEIZURES
     Dosage: 200 MG BID ORAL
     Route: 048
     Dates: start: 20101222
  2. ZONISAMIDE [Concomitant]
  3. PREGABALIN [Concomitant]

REACTIONS (1)
  - GRAND MAL CONVULSION [None]
